FAERS Safety Report 4454581-2 (Version None)
Quarter: 2004Q3

REPORT INFORMATION
  Report Type: 
  Country: None (occurrence: None)
  Receive Date: 20040920
  Receipt Date: 20040920
  Transmission Date: 20050211
  Serious: Yes (Other)
  Sender: FDA-Public Use
  Company Number: None

PATIENT
  Age: 18 Year
  Sex: Female
  Weight: 63 kg

DRUGS (1)
  1. ISOVUE-128 [Suspect]
     Indication: ACUTE LYMPHOCYTIC LEUKAEMIA
     Dosage: IV X1
     Route: 042
     Dates: start: 20040624

REACTIONS (5)
  - CONTRAST MEDIA REACTION [None]
  - COUGH [None]
  - DYSPNOEA [None]
  - FEELING HOT [None]
  - THROAT TIGHTNESS [None]
